FAERS Safety Report 17122669 (Version 1)
Quarter: 2019Q4

REPORT INFORMATION
  Report Type: Spontaneous
  Country: IT (occurrence: IT)
  Receive Date: 20191206
  Receipt Date: 20191206
  Transmission Date: 20200122
  Serious: Yes (Hospitalization)
  Sender: FDA-Public Use
  Company Number: IT-PFIZER INC-2019523660

PATIENT
  Age: 74 Year
  Sex: Female

DRUGS (2)
  1. MEDROL [Suspect]
     Active Substance: METHYLPREDNISOLONE
     Indication: SEASONAL ALLERGY
     Dosage: 16 MG, UNK
  2. MEDROL [Suspect]
     Active Substance: METHYLPREDNISOLONE
     Indication: ALLERGIC RESPIRATORY DISEASE

REACTIONS (3)
  - Headache [Unknown]
  - Diplopia [Recovered/Resolved]
  - Migraine [Unknown]
